FAERS Safety Report 4380249-7 (Version None)
Quarter: 2004Q2

REPORT INFORMATION
  Report Type: 
  Country: None (occurrence: None)
  Receive Date: 20040614
  Receipt Date: 20040601
  Transmission Date: 20050107
  Serious: Yes (Hospitalization)
  Sender: FDA-Public Use
  Company Number: 033-0945-990076

PATIENT
  Age: 48 Year
  Sex: Female

DRUGS (1)
  1. NEURONTIN [Suspect]
     Indication: EPILEPSY
     Dosage: 1200 MG (400 MG, 3 IN 1 D) ORAL
     Route: 048
     Dates: start: 19990625

REACTIONS (1)
  - SUDDEN HEARING LOSS [None]
